FAERS Safety Report 13872371 (Version 1)
Quarter: 2017Q3

REPORT INFORMATION
  Report Type: Spontaneous
  Country: FR (occurrence: FR)
  Receive Date: 20170816
  Receipt Date: 20170816
  Transmission Date: 20171127
  Serious: Yes (Hospitalization, Other)
  Sender: FDA-Public Use
  Company Number: FR-BAXTER-2017BAX029109

PATIENT
  Age: 53 Year
  Sex: Female

DRUGS (31)
  1. ENDOXAN 1000 MG, POUDRE POUR SOLUTION INJECTABLE [Suspect]
     Active Substance: CYCLOPHOSPHAMIDE
     Indication: B-CELL LYMPHOMA
     Dosage: AS PART OF R-CHOP THERAPY
     Route: 065
  2. RITUXIMAB. [Suspect]
     Active Substance: RITUXIMAB
     Indication: B-CELL LYMPHOMA
     Dosage: AS PART OF R-CHOP THERAPY
     Route: 065
  3. DEXAMETHASONE. [Suspect]
     Active Substance: DEXAMETHASONE
     Indication: B-CELL LYMPHOMA
     Dosage: AS PART OF R-DHAP THERAPY
     Route: 065
  4. THYMOGLOBULINE [Suspect]
     Active Substance: LAPINE T-LYMPHOCYTE IMMUNE GLOBULIN
     Indication: PROPHYLAXIS AGAINST TRANSPLANT REJECTION
     Dates: start: 20170627, end: 20170628
  5. ZOPHREN [Suspect]
     Active Substance: ONDANSETRON
     Indication: PRODUCT USED FOR UNKNOWN INDICATION
     Dosage: POSOLOGY INCREASED
     Route: 065
     Dates: start: 20170627
  6. LASILIX [Suspect]
     Active Substance: FUROSEMIDE
     Indication: ADVERSE EVENT
     Route: 065
     Dates: end: 20170702
  7. RIMIFON [Concomitant]
     Active Substance: ISONIAZID
     Indication: PULMONARY TUBERCULOSIS
     Route: 065
  8. CISPLATIN. [Suspect]
     Active Substance: CISPLATIN
     Indication: B-CELL LYMPHOMA
     Dosage: AS PART OF R-DHAP THERAPY
     Route: 065
  9. METHOTREXATE (METHOTREXATE SODIUM) [Suspect]
     Active Substance: METHOTREXATE SODIUM
     Indication: PROPHYLAXIS AGAINST TRANSPLANT REJECTION
     Route: 042
     Dates: start: 20170701, end: 20170711
  10. ATORVASTATIN [Concomitant]
     Active Substance: ATORVASTATIN
     Indication: PRODUCT USED FOR UNKNOWN INDICATION
     Route: 065
  11. KARDEGIC [Concomitant]
     Active Substance: ASPIRIN LYSINE
     Indication: PRODUCT USED FOR UNKNOWN INDICATION
     Route: 065
  12. RITUXIMAB. [Suspect]
     Active Substance: RITUXIMAB
     Dosage: AS PART OF R-DHAP THERAPY
     Route: 065
  13. VINCRISTINE [Suspect]
     Active Substance: VINCRISTINE
     Indication: B-CELL LYMPHOMA
     Dosage: AS PART OF R-CHOP THERAPY
     Route: 065
  14. SANDIMMUN [Suspect]
     Active Substance: CYCLOSPORINE
     Indication: PROPHYLAXIS AGAINST TRANSPLANT REJECTION
     Dosage: DOSAGE FORM: SOLUTION FOR INJECTION FOR IV INFUSION
     Route: 042
     Dates: start: 20170626, end: 20170703
  15. METHYLPREDNISOLONE. [Suspect]
     Active Substance: METHYLPREDNISOLONE
     Indication: BONE MARROW CONDITIONING REGIMEN
     Route: 042
     Dates: start: 20170627, end: 20170628
  16. AMIKLIN [Suspect]
     Active Substance: AMIKACIN SULFATE
     Indication: ADVERSE EVENT
     Route: 065
     Dates: start: 20170628
  17. SEROPLEX [Concomitant]
     Active Substance: ESCITALOPRAM OXALATE
     Indication: PRODUCT USED FOR UNKNOWN INDICATION
     Route: 065
  18. RITUXIMAB. [Suspect]
     Active Substance: RITUXIMAB
     Route: 065
  19. ENDOXAN 1000 MG, POUDRE POUR SOLUTION INJECTABLE [Suspect]
     Active Substance: CYCLOPHOSPHAMIDE
     Indication: BONE MARROW CONDITIONING REGIMEN
     Dosage: DAY -5 TO DAY -3
     Route: 042
     Dates: start: 20170625, end: 20170627
  20. DOXORUBICIN [Suspect]
     Active Substance: DOXORUBICIN
     Indication: B-CELL LYMPHOMA
     Dosage: AS PART OF R-CHOP THERAPY
     Route: 065
  21. PREDNISOLONE. [Suspect]
     Active Substance: PREDNISOLONE
     Indication: B-CELL LYMPHOMA
     Dosage: AS PART OF R-CHOP THERAPY
     Route: 065
  22. CYTARABINE. [Suspect]
     Active Substance: CYTARABINE
     Indication: B-CELL LYMPHOMA
     Dosage: AS PART OF R-DHAP THERAPY
     Route: 065
  23. POLARAMINE [Suspect]
     Active Substance: DEXCHLORPHENIRAMINE MALEATE
     Indication: BONE MARROW CONDITIONING REGIMEN
     Route: 042
     Dates: start: 20170627, end: 20170628
  24. FEXOFENADINE [Concomitant]
     Active Substance: FEXOFENADINE\FEXOFENADINE HYDROCHLORIDE
     Indication: PRODUCT USED FOR UNKNOWN INDICATION
     Route: 065
  25. INEXIUM [Concomitant]
     Active Substance: ESOMEPRAZOLE
     Indication: PRODUCT USED FOR UNKNOWN INDICATION
     Route: 065
  26. FLUDARABINE TEVA [Suspect]
     Active Substance: FLUDARABINE PHOSPHATE
     Indication: BONE MARROW CONDITIONING REGIMEN
     Dosage: DOSAGE FORM: SOLUTION FOR DILUTION FOR INJECTION OR INFUSION (DAY -5 TO DAY -3)
     Route: 042
     Dates: start: 20170625, end: 20170627
  27. MESNA EG [Suspect]
     Active Substance: MESNA
     Indication: BONE MARROW CONDITIONING REGIMEN
     Dosage: DOSAGE FORM: SOLUTION FOR INJECTION FOR INFUSION (DAY -5 TO DAY -3)
     Route: 042
     Dates: start: 20170625, end: 20170627
  28. MABTHERA [Suspect]
     Active Substance: RITUXIMAB
     Indication: BONE MARROW CONDITIONING REGIMEN
     Route: 042
     Dates: start: 20170624, end: 20170708
  29. ZOPHREN [Suspect]
     Active Substance: ONDANSETRON
     Indication: NAUSEA
     Route: 065
  30. TIENAM [Suspect]
     Active Substance: CILASTATIN SODIUM\IMIPENEM
     Indication: ADVERSE EVENT
     Route: 065
     Dates: start: 20170628
  31. VANCOMYCIN [Suspect]
     Active Substance: VANCOMYCIN
     Indication: ADVERSE EVENT
     Route: 065
     Dates: start: 20170628

REACTIONS (21)
  - Thrombotic microangiopathy [Not Recovered/Not Resolved]
  - Human rhinovirus test [Unknown]
  - Confusional state [Unknown]
  - Rhinorrhoea [Unknown]
  - Gastrointestinal infection [Unknown]
  - Hallucination [Unknown]
  - Cardiac disorder [Unknown]
  - Acute kidney injury [Recovered/Resolved]
  - Bone marrow failure [Not Recovered/Not Resolved]
  - B-cell lymphoma recurrent [Unknown]
  - Roseolovirus test positive [Unknown]
  - Nausea [Unknown]
  - Enterovirus test positive [Unknown]
  - Ventricular hypokinesia [Unknown]
  - B-cell lymphoma [Unknown]
  - Sepsis [Unknown]
  - Dry skin [Unknown]
  - Metabolic acidosis [Unknown]
  - Ovarian enlargement [Unknown]
  - Haemolysis [Not Recovered/Not Resolved]
  - Lung disorder [Unknown]

NARRATIVE: CASE EVENT DATE: 201404
